FAERS Safety Report 10909554 (Version 2)
Quarter: 2017Q1

REPORT INFORMATION
  Report Type: Spontaneous
  Country: US (occurrence: US)
  Receive Date: 20150312
  Receipt Date: 20170320
  Transmission Date: 20170428
  Serious: No
  Sender: FDA-Public Use
  Company Number: US-SA-2014SA065994

PATIENT
  Age: 38 Year
  Sex: Female

DRUGS (3)
  1. NASACORT ALLERGY 24HR [Suspect]
     Active Substance: TRIAMCINOLONE ACETONIDE
     Indication: MULTIPLE ALLERGIES
     Dosage: FREQUENCY: 2 SPRAYS/ NOSTRIL?DOSE: 120 SPRAYS
     Route: 065
     Dates: start: 20160426, end: 20160429
  2. NASACORT ALLERGY 24HR [Suspect]
     Active Substance: TRIAMCINOLONE ACETONIDE
     Indication: MULTIPLE ALLERGIES
     Dosage: DOSE: 2SPRAYS/NOSTRIL
     Route: 065
     Dates: start: 20140514, end: 20140514
  3. NASACORT ALLERGY 24HR [Suspect]
     Active Substance: TRIAMCINOLONE ACETONIDE
     Indication: MULTIPLE ALLERGIES
     Dosage: DOSE: 2SPRAYS/NOSTRIL
     Route: 065
     Dates: start: 20140514, end: 20140514

REACTIONS (2)
  - Blister [Unknown]
  - Drug ineffective [Unknown]
